FAERS Safety Report 5064340-8 (Version None)
Quarter: 2006Q3

REPORT INFORMATION
  Report Type: 
  Country: None (occurrence: None)
  Receive Date: 20060728
  Receipt Date: 20060719
  Transmission Date: 20061208
  Serious: Yes (Other)
  Sender: FDA-Public Use
  Company Number: FR-AVENTIS-200613951EU

PATIENT
  Age: 78 Year
  Sex: Female

DRUGS (50)
  1. ENOXAPARIN SODIUM [Suspect]
     Indication: THROMBOSIS PROPHYLAXIS
     Route: 058
     Dates: start: 20060625, end: 20060704
  2. ASPIRIN [Concomitant]
     Indication: CEREBROVASCULAR ACCIDENT PROPHYLAXIS
     Route: 048
     Dates: start: 20020101, end: 20060625
  3. FLECAINIDE ACETATE [Concomitant]
     Indication: ARRHYTHMIA
     Dates: start: 19980101, end: 20060625
  4. CIBACENE [Concomitant]
     Indication: HYPERTENSION
     Dates: start: 19980101, end: 20060629
  5. ALPRESS [Concomitant]
     Indication: HYPERTENSION
     Dates: start: 19980101, end: 20060629
  6. ALPRESS [Concomitant]
     Dates: start: 20060630, end: 20060630
  7. ALPRESS [Concomitant]
     Dates: start: 20060701, end: 20060701
  8. DETRUSITOL [Concomitant]
     Indication: URINARY INCONTINENCE
     Dates: start: 20050501, end: 20060628
  9. DETRUSITOL [Concomitant]
     Dates: start: 20060629, end: 20060629
  10. DETRUSITOL [Concomitant]
     Dates: start: 20060630, end: 20060630
  11. DETRUSITOL [Concomitant]
     Dates: start: 20060701, end: 20060705
  12. DETRUSITOL [Concomitant]
     Dates: start: 20060706
  13. PIASCLEDINE [Concomitant]
     Indication: OSTEOARTHRITIS
     Dates: start: 20010101
  14. OMEPRAZOLE [Concomitant]
     Indication: ULCER
     Route: 042
     Dates: start: 19930101, end: 20060702
  15. OMEPRAZOLE [Concomitant]
     Route: 042
     Dates: start: 20060703, end: 20060703
  16. DAFLON [Concomitant]
     Indication: VENOUS INSUFFICIENCY
     Dates: start: 19900101, end: 20060628
  17. DAFLON [Concomitant]
     Dates: start: 19900629, end: 20060629
  18. DAFLON [Concomitant]
     Dates: start: 20060630, end: 20060630
  19. DAFLON [Concomitant]
     Dates: start: 20060703, end: 20060704
  20. DAFLON [Concomitant]
     Dates: start: 20060705
  21. VASTAREL [Concomitant]
     Indication: VERTIGO
     Dates: start: 19900101, end: 20060628
  22. VASTAREL [Concomitant]
     Dates: start: 20060629, end: 20060629
  23. VASTAREL [Concomitant]
     Dates: start: 20060701, end: 20060701
  24. VASTAREL [Concomitant]
     Dates: start: 20060702, end: 20060702
  25. SPASFON [Concomitant]
     Indication: COLITIS
     Route: 048
     Dates: start: 20050101, end: 20060630
  26. SPASFON [Concomitant]
     Route: 042
     Dates: start: 20060701, end: 20060704
  27. SPASFON [Concomitant]
     Route: 048
     Dates: start: 20060705
  28. SPASMINE [Concomitant]
     Indication: INSOMNIA
     Dates: start: 20050101, end: 20060628
  29. SPASMINE [Concomitant]
     Dates: start: 20060629, end: 20060629
  30. SPASMINE [Concomitant]
     Dates: start: 20060630, end: 20060630
  31. SPASMINE [Concomitant]
     Dates: start: 20060702, end: 20060702
  32. LECTIL [Concomitant]
     Indication: VERTIGO
     Dates: start: 20050101, end: 20060630
  33. LECTIL [Concomitant]
     Dates: start: 20060702, end: 20060703
  34. LECTIL [Concomitant]
     Dates: start: 20060704, end: 20060704
  35. TARDYFERON [Concomitant]
     Indication: ANAEMIA PROPHYLAXIS
     Dates: start: 20060529, end: 20060625
  36. PRIMPERAN TAB [Concomitant]
     Indication: NAUSEA
     Route: 048
     Dates: start: 20060627, end: 20060627
  37. PRIMPERAN TAB [Concomitant]
     Indication: VOMITING
     Route: 048
     Dates: start: 20060627, end: 20060627
  38. NORMACOL [Concomitant]
     Indication: CONSTIPATION
     Dates: start: 20060628, end: 20060629
  39. TOPALGIC [Concomitant]
     Indication: PAIN
     Dates: start: 20060628, end: 20060629
  40. DAFALGAN [Concomitant]
     Indication: PAIN
     Dates: start: 20060628, end: 20060702
  41. ACETAMINOPHEN [Concomitant]
     Indication: PAIN
     Dates: start: 20060627, end: 20060627
  42. COMPENSAL [Concomitant]
     Dates: start: 20060626, end: 20060626
  43. CORDARONE [Concomitant]
     Indication: TACHYCARDIA
     Dates: start: 19980101, end: 20060629
  44. CORDARONE [Concomitant]
     Dates: start: 20060630, end: 20060630
  45. CORDARONE [Concomitant]
     Dates: start: 20060701
  46. FURADANTIN [Concomitant]
     Indication: CYSTITIS
     Dates: start: 20060614, end: 20060623
  47. LEXOMIL [Concomitant]
     Indication: ANXIETY
     Dates: start: 20060628, end: 20060628
  48. MAGNESIUM [Concomitant]
     Indication: BLOOD MAGNESIUM DECREASED
     Dates: start: 20060627, end: 20060628
  49. MAGNESIUM [Concomitant]
     Dates: start: 20060630, end: 20060703
  50. MAGNESIUM [Concomitant]
     Dates: start: 20060705

REACTIONS (2)
  - INTESTINAL OBSTRUCTION [None]
  - PANCREATITIS [None]
